FAERS Safety Report 7676544-6 (Version None)
Quarter: 2011Q3

REPORT INFORMATION
  Report Type: 
  Country: None (occurrence: None)
  Receive Date: 20110811
  Receipt Date: 20110729
  Transmission Date: 20111222
  Serious: Yes (Other)
  Sender: FDA-Public Use
  Company Number: US-RANBAXY-2011US-46512

PATIENT

DRUGS (4)
  1. THEOPHYLLINE [Concomitant]
     Indication: PRODUCT USED FOR UNKNOWN INDICATION
     Dosage: UNK
     Route: 065
  2. DONEPEZIL HYDROCHLORIDE [Suspect]
     Indication: ANXIETY
     Dosage: 10 MG,1 TABLET BEFORE SLEEP
     Route: 048
     Dates: start: 20110727
  3. PREDNISONE [Concomitant]
     Indication: PRODUCT USED FOR UNKNOWN INDICATION
     Dosage: UNK
     Route: 065
  4. MUCINEX [Concomitant]
     Indication: PRODUCT USED FOR UNKNOWN INDICATION
     Dosage: UNK
     Route: 065

REACTIONS (4)
  - TREMOR [None]
  - PRURITUS [None]
  - OFF LABEL USE [None]
  - DYSPNOEA [None]
